FAERS Safety Report 4303637-3 (Version None)
Quarter: 2004Q1

REPORT INFORMATION
  Report Type: 
  Country: None (occurrence: None)
  Receive Date: 20040224
  Receipt Date: 20040224
  Transmission Date: 20041129
  Serious: Yes (Other)
  Sender: FDA-Public Use
  Company Number: None

PATIENT
  Sex: Male

DRUGS (1)
  1. CLOZAPINE [Suspect]
     Indication: SCHIZOPHRENIA

REACTIONS (4)
  - CONDITION AGGRAVATED [None]
  - DRUG LEVEL CHANGED [None]
  - PHARMACEUTICAL PRODUCT COMPLAINT [None]
  - WHITE BLOOD CELL DISORDER [None]
